FAERS Safety Report 19815019 (Version 1)
Quarter: 2021Q3

REPORT INFORMATION
  Report Type: Report from Study
  Country: CA (occurrence: CA)
  Receive Date: 20210910
  Receipt Date: 20210910
  Transmission Date: 20211014
  Serious: Yes (Other)
  Sender: FDA-Public Use
  Company Number: CA-ASTRAZENECA-2021A713409

PATIENT
  Age: 24992 Day
  Sex: Female

DRUGS (97)
  1. OLAPARIB. [Suspect]
     Active Substance: OLAPARIB
     Indication: OVARIAN CANCER
     Route: 048
     Dates: start: 20170730, end: 20210902
  2. INFLUENZA VACCINE [Concomitant]
     Active Substance: INFLUENZA VIRUS VACCINE
     Indication: INFLUENZA IMMUNISATION
     Dosage: 0.5ML ONCE/SINGLE ADMINISTRATION
     Route: 030
     Dates: start: 20191114, end: 20191114
  3. ACETAMINOPHEN. [Concomitant]
     Active Substance: ACETAMINOPHEN
     Indication: NASOPHARYNGITIS
     Route: 048
     Dates: start: 20150216, end: 20150307
  4. ACETAMINOPHEN. [Concomitant]
     Active Substance: ACETAMINOPHEN
     Indication: ARTHRALGIA
     Route: 048
     Dates: start: 20151127, end: 20151129
  5. ACETAMINOPHEN. [Concomitant]
     Active Substance: ACETAMINOPHEN
     Indication: BACK PAIN
     Dosage: AS REQUIRED
     Route: 048
     Dates: start: 20140409, end: 20140715
  6. ACETAMINOPHEN. [Concomitant]
     Active Substance: ACETAMINOPHEN
     Indication: HEADACHE
     Dosage: AS REQUIRED
     Route: 048
     Dates: start: 20140409, end: 20140715
  7. WATER+SALT+SODIUMBICARBONAT [Concomitant]
     Indication: ORAL DISORDER
     Dosage: AS REQUIRED
     Route: 065
     Dates: start: 20151118, end: 20151122
  8. CENTRUMWOMEN [Concomitant]
     Indication: MULTIMORBIDITY
     Route: 048
  9. VOLTAREN [Concomitant]
     Active Substance: DICLOFENAC SODIUM
     Indication: ARTHRALGIA
     Dosage: 5 G
     Route: 003
     Dates: start: 20140303, end: 20140304
  10. ACETAMINOPHEN. [Concomitant]
     Active Substance: ACETAMINOPHEN
     Indication: BACK PAIN
     Route: 048
     Dates: start: 20151127, end: 20151129
  11. ACETAMINOPHEN. [Concomitant]
     Active Substance: ACETAMINOPHEN
     Indication: ARTHRALGIA
     Route: 048
     Dates: start: 20151225, end: 20151226
  12. ACETAMINOPHEN. [Concomitant]
     Active Substance: ACETAMINOPHEN
     Indication: BACK PAIN
     Route: 048
     Dates: start: 20151225, end: 20151226
  13. ACETAMINOPHEN. [Concomitant]
     Active Substance: ACETAMINOPHEN
     Indication: ARTHRALGIA
     Dosage: AS REQUIRED
     Route: 048
     Dates: start: 20140409, end: 20140715
  14. ACETAMINOPHEN. [Concomitant]
     Active Substance: ACETAMINOPHEN
     Indication: ARTHRALGIA
     Route: 048
     Dates: start: 20160702, end: 20160703
  15. FLUVACCINE [Concomitant]
     Active Substance: INFLUENZA VIRUS VACCINE
     Indication: ANTIVIRAL PROPHYLAXIS
     Dosage: 0.5ML ONCE/SINGLE ADMINISTRATION
     Route: 030
     Dates: start: 20171108, end: 20171108
  16. TYLENOL [Concomitant]
     Active Substance: ACETAMINOPHEN
     Indication: HEADACHE
     Dosage: AS REQUIRED
     Route: 048
     Dates: start: 20170122, end: 20170202
  17. PNEUMOVAX23VACCINE [Concomitant]
     Indication: PNEUMONIA
     Dosage: 0.5ML ONCE/SINGLE ADMINISTRATION
     Route: 030
     Dates: start: 20181115, end: 20181115
  18. PFIZER?BIONTECHCOVID?19VACCINE [Concomitant]
     Indication: COVID-19 PROPHYLAXIS
     Dosage: 0.3ML ONCE/SINGLE ADMINISTRATION
     Route: 030
     Dates: start: 20210403, end: 20210403
  19. RESTORE_LAX?POLYETHYLENEGLYCOL3350 [Concomitant]
     Indication: CONSTIPATION
     Route: 048
     Dates: end: 20151115
  20. CELEBREX [Concomitant]
     Active Substance: CELECOXIB
     Indication: PAIN IN EXTREMITY
     Dosage: 200.0MG AS REQUIRED
     Route: 048
     Dates: start: 20140520, end: 20140610
  21. INFLUENZA VACCINE [Concomitant]
     Active Substance: INFLUENZA VIRUS VACCINE
     Indication: ANTIVIRAL PROPHYLAXIS
     Dosage: 0.5ML ONCE/SINGLE ADMINISTRATION
     Route: 030
     Dates: start: 20151201, end: 20151201
  22. ACETAMINOPHEN. [Concomitant]
     Active Substance: ACETAMINOPHEN
     Indication: BACK PAIN
     Route: 048
     Dates: start: 20150216, end: 20150307
  23. ACETAMINOPHEN. [Concomitant]
     Active Substance: ACETAMINOPHEN
     Indication: HEADACHE
     Route: 048
     Dates: start: 20151127, end: 20151129
  24. ACETAMINOPHEN. [Concomitant]
     Active Substance: ACETAMINOPHEN
     Indication: NASOPHARYNGITIS
     Route: 048
     Dates: start: 20160702, end: 20160703
  25. WATER+SALT+SODIUMBICARBONAT [Concomitant]
     Indication: ORAL DISORDER
     Dosage: AS REQUIRED
     Route: 065
     Dates: start: 20171118, end: 20171119
  26. TYLENOL [Concomitant]
     Active Substance: ACETAMINOPHEN
     Indication: MYALGIA
     Dosage: 500.0MG ONCE/SINGLE ADMINISTRATION
     Route: 048
     Dates: start: 20161123, end: 20161123
  27. TYLENOL [Concomitant]
     Active Substance: ACETAMINOPHEN
     Indication: MYALGIA
     Dosage: AS REQUIRED ONCE/SINGLE ADMINISTRATION
     Route: 048
     Dates: start: 20170429, end: 20200624
  28. FLAGYL [Concomitant]
     Active Substance: METRONIDAZOLE\METRONIDAZOLE HYDROCHLORIDE
     Indication: CHOLECYSTITIS ACUTE
     Route: 048
     Dates: start: 20170724, end: 20170729
  29. OLAPARIB. [Suspect]
     Active Substance: OLAPARIB
     Indication: OVARIAN CANCER
     Route: 048
     Dates: start: 20140114, end: 20170724
  30. MIRTAZAPINE. [Concomitant]
     Active Substance: MIRTAZAPINE
     Indication: INSOMNIA
     Dosage: 15.0MG AS REQUIRED
     Route: 048
     Dates: end: 20140101
  31. CELEBREX [Concomitant]
     Active Substance: CELECOXIB
     Indication: PAIN IN EXTREMITY
     Dosage: 200.0MG AS REQUIRED
     Route: 048
     Dates: start: 20140707, end: 20140715
  32. ORABASE [Concomitant]
     Active Substance: CARBOXYMETHYLCELLULOSE SODIUM\GELATIN\PECTIN
     Indication: ORAL PAIN
     Dosage: THREE TIMES A DAY
     Route: 004
     Dates: start: 20140611, end: 20140617
  33. ACETAMINOPHEN. [Concomitant]
     Active Substance: ACETAMINOPHEN
     Indication: NASOPHARYNGITIS
     Route: 048
     Dates: start: 20151225, end: 20151226
  34. ACETAMINOPHEN. [Concomitant]
     Active Substance: ACETAMINOPHEN
     Indication: HEADACHE
     Route: 048
     Dates: start: 20151203, end: 20151205
  35. ACETAMINOPHEN. [Concomitant]
     Active Substance: ACETAMINOPHEN
     Indication: ARTHRALGIA
     Dosage: AS REQUIRED
     Route: 048
     Dates: start: 20140409, end: 20140715
  36. ACETAMINOPHEN. [Concomitant]
     Active Substance: ACETAMINOPHEN
     Indication: ARTHRALGIA
     Route: 048
     Dates: start: 20160702, end: 20160703
  37. WATER+SALT+SODIUMBICARBONAT [Concomitant]
     Indication: MOUTH ULCERATION
     Dosage: AS REQUIRED
     Route: 065
     Dates: start: 20171118, end: 20171119
  38. TYLENOL [Concomitant]
     Active Substance: ACETAMINOPHEN
     Indication: MYALGIA
     Dosage: AS REQUIRED
     Route: 048
     Dates: start: 20170122, end: 20170202
  39. TYLENOL [Concomitant]
     Active Substance: ACETAMINOPHEN
     Indication: HEADACHE
     Dosage: 500.0MG ONCE/SINGLE ADMINISTRATION
     Route: 048
     Dates: start: 20161123, end: 20161123
  40. TYLENOL [Concomitant]
     Active Substance: ACETAMINOPHEN
     Indication: HEADACHE
     Dosage: AS REQUIRED ONCE/SINGLE ADMINISTRATION
     Route: 048
     Dates: start: 20170429, end: 20200624
  41. CIPRO [Concomitant]
     Active Substance: CIPROFLOXACIN HYDROCHLORIDE
     Indication: CHOLECYSTITIS ACUTE
     Route: 048
     Dates: start: 20170724, end: 20170729
  42. METRONIDAZOLE. [Concomitant]
     Active Substance: METRONIDAZOLE
     Indication: CHOLECYSTITIS ACUTE
     Route: 048
     Dates: start: 20170724, end: 20170729
  43. DILAUDID [Concomitant]
     Active Substance: HYDROMORPHONE HYDROCHLORIDE
     Indication: CHOLECYSTITIS ACUTE
     Dosage: AS REQUIRED
     Route: 048
     Dates: start: 20170721, end: 20170723
  44. OLAPARIB. [Suspect]
     Active Substance: OLAPARIB
     Indication: OVARIAN CANCER
     Route: 048
     Dates: start: 20170726, end: 20170729
  45. OLAPARIB. [Suspect]
     Active Substance: OLAPARIB
     Indication: OVARIAN CANCER
     Route: 048
     Dates: start: 20170725, end: 20170725
  46. OLAPARIB. [Suspect]
     Active Substance: OLAPARIB
     Indication: OVARIAN CANCER
     Route: 048
     Dates: start: 20210903, end: 20210903
  47. RESTORE_LAX?POLYETHYLENEGLYCOL3350 [Concomitant]
     Indication: CONSTIPATION
     Dosage: AS REQUIRED
     Route: 048
     Dates: start: 20160807, end: 20160819
  48. VOLTAREN [Concomitant]
     Active Substance: DICLOFENAC SODIUM
     Indication: PAIN
     Dosage: 5 G
     Route: 003
     Dates: start: 20140513, end: 20140514
  49. CELEBREX [Concomitant]
     Active Substance: CELECOXIB
     Indication: PAIN IN EXTREMITY
     Dosage: 200.0MG AS REQUIRED
     Route: 048
     Dates: start: 20140707, end: 20140715
  50. ACETAMINOPHEN. [Concomitant]
     Active Substance: ACETAMINOPHEN
     Indication: HEADACHE
     Route: 048
     Dates: start: 20150216, end: 20150307
  51. ACETAMINOPHEN. [Concomitant]
     Active Substance: ACETAMINOPHEN
     Indication: ARTHRALGIA
     Route: 048
     Dates: start: 20151127, end: 20151129
  52. ACETAMINOPHEN. [Concomitant]
     Active Substance: ACETAMINOPHEN
     Indication: PAIN IN EXTREMITY
     Route: 048
     Dates: start: 20151127, end: 20151129
  53. ACETAMINOPHEN. [Concomitant]
     Active Substance: ACETAMINOPHEN
     Indication: NASOPHARYNGITIS
     Route: 048
     Dates: start: 20151203, end: 20151205
  54. ACETAMINOPHEN. [Concomitant]
     Active Substance: ACETAMINOPHEN
     Indication: PAIN IN EXTREMITY
     Dosage: AS REQUIRED
     Route: 048
     Dates: start: 20140409, end: 20140715
  55. WATER+SALT+SODIUMBICARBONAT [Concomitant]
     Indication: MOUTH ULCERATION
     Dosage: AS REQUIRED
     Route: 065
     Dates: start: 20151118, end: 20151122
  56. WATER+SALT+SODIUMBICARBONAT [Concomitant]
     Indication: MOUTH ULCERATION
     Dosage: AS REQUIRED
     Route: 065
     Dates: start: 20161118, end: 20161123
  57. RESTORE?A?LAX [Concomitant]
     Indication: CONSTIPATION
     Dosage: AS REQUIRED
     Route: 048
     Dates: start: 20170818, end: 20171214
  58. REPAGYN [Concomitant]
     Indication: URINARY INCONTINENCE
     Route: 067
     Dates: start: 20180826, end: 20190305
  59. RESTORE_LAX?POLYETHYLENEGLYCOL3350 [Concomitant]
     Indication: CONSTIPATION
     Dosage: AS REQUIRED
     Route: 048
     Dates: start: 20160213, end: 20160523
  60. VOLTAREN [Concomitant]
     Active Substance: DICLOFENAC SODIUM
     Indication: PAIN
     Dosage: 5 G
     Route: 003
     Dates: start: 20140303, end: 20140304
  61. SODIUM FLUORIDE/SODIUM BICARBONATE [Concomitant]
     Indication: NEOPLASM MALIGNANT
     Dosage: QID
     Route: 065
     Dates: start: 20141002, end: 20141007
  62. ACETAMINOPHEN. [Concomitant]
     Active Substance: ACETAMINOPHEN
     Indication: ARTHRALGIA
     Route: 048
     Dates: start: 20151203, end: 20151205
  63. ACETAMINOPHEN. [Concomitant]
     Active Substance: ACETAMINOPHEN
     Indication: HEADACHE
     Route: 048
     Dates: start: 20160702, end: 20160703
  64. WATER+SALT+SODIUMBICARBONAT [Concomitant]
     Indication: OROPHARYNGEAL PAIN
     Dosage: AS REQUIRED
     Route: 065
     Dates: start: 20151118, end: 20151122
  65. WATER+SALT+SODIUMBICARBONAT [Concomitant]
     Indication: OROPHARYNGEAL PAIN
     Dosage: AS REQUIRED
     Route: 065
     Dates: start: 20161118, end: 20161123
  66. WATER+SALT+SODIUMBICARBONAT [Concomitant]
     Indication: OROPHARYNGEAL PAIN
     Dosage: AS REQUIRED
     Route: 065
     Dates: start: 20171118, end: 20171119
  67. TYLENOL [Concomitant]
     Active Substance: ACETAMINOPHEN
     Indication: RHINORRHOEA
     Dosage: AS REQUIRED ONCE/SINGLE ADMINISTRATION
     Route: 048
     Dates: start: 20170429, end: 20200624
  68. PFIZER?BIONTECHCOVID?19VACCINE [Concomitant]
     Indication: COVID-19 PROPHYLAXIS
     Dosage: 0.3ML ONCE/SINGLE ADMINISTRATION
     Route: 030
     Dates: start: 20210525, end: 20210525
  69. ACETAMINOPHEN. [Concomitant]
     Active Substance: ACETAMINOPHEN
     Indication: ARTHRALGIA
     Route: 048
     Dates: start: 20150216, end: 20150307
  70. ACETAMINOPHEN. [Concomitant]
     Active Substance: ACETAMINOPHEN
     Indication: ARTHRALGIA
     Route: 048
     Dates: start: 20150216, end: 20150307
  71. ACETAMINOPHEN. [Concomitant]
     Active Substance: ACETAMINOPHEN
     Indication: PAIN IN EXTREMITY
     Route: 048
     Dates: start: 20150216, end: 20150307
  72. ACETAMINOPHEN. [Concomitant]
     Active Substance: ACETAMINOPHEN
     Indication: NASOPHARYNGITIS
     Route: 048
     Dates: start: 20151127, end: 20151129
  73. ACETAMINOPHEN. [Concomitant]
     Active Substance: ACETAMINOPHEN
     Indication: ARTHRALGIA
     Route: 048
     Dates: start: 20151225, end: 20151226
  74. ACETAMINOPHEN. [Concomitant]
     Active Substance: ACETAMINOPHEN
     Indication: PAIN IN EXTREMITY
     Route: 048
     Dates: start: 20151225, end: 20151226
  75. ACETAMINOPHEN. [Concomitant]
     Active Substance: ACETAMINOPHEN
     Indication: HEADACHE
     Route: 048
     Dates: start: 20151225, end: 20151226
  76. ACETAMINOPHEN. [Concomitant]
     Active Substance: ACETAMINOPHEN
     Indication: BACK PAIN
     Route: 048
     Dates: start: 20151203, end: 20151205
  77. WATER+SALT+SODIUMBICARBONAT [Concomitant]
     Indication: ORAL DISORDER
     Dosage: AS REQUIRED
     Route: 065
     Dates: start: 20161118, end: 20161123
  78. FLUVACCINE [Concomitant]
     Active Substance: INFLUENZA VIRUS VACCINE
     Indication: ANTIVIRAL PROPHYLAXIS
     Dosage: 0.5ML ONCE/SINGLE ADMINISTRATION
     Route: 030
     Dates: start: 20161103, end: 20161103
  79. TYLENOL [Concomitant]
     Active Substance: ACETAMINOPHEN
     Indication: RHINORRHOEA
     Dosage: AS REQUIRED
     Route: 048
     Dates: start: 20170122, end: 20170202
  80. RESTORE?A?LAX [Concomitant]
     Indication: CONSTIPATION
     Route: 048
     Dates: start: 20190910, end: 20200916
  81. TAZOCIN [Concomitant]
     Active Substance: PIPERACILLIN SODIUM\TAZOBACTAM SODIUM
     Indication: CHOLECYSTITIS ACUTE
     Route: 042
     Dates: start: 20170721, end: 20170722
  82. REPAGYN [Concomitant]
     Indication: URINARY INCONTINENCE
     Route: 067
     Dates: start: 20190306, end: 20190607
  83. OLAPARIB. [Suspect]
     Active Substance: OLAPARIB
     Indication: OVARIAN CANCER
     Route: 048
     Dates: start: 20170725, end: 20170725
  84. VOLTAREN [Concomitant]
     Active Substance: DICLOFENAC SODIUM
     Indication: ARTHRALGIA
     Dosage: 5 G
     Route: 003
     Dates: start: 20140513, end: 20140514
  85. CELEBREX [Concomitant]
     Active Substance: CELECOXIB
     Indication: PAIN IN EXTREMITY
     Dosage: 200.0MG AS REQUIRED
     Route: 048
     Dates: start: 20140520, end: 20140610
  86. INFLUENZA VACCINE [Concomitant]
     Active Substance: INFLUENZA VIRUS VACCINE
     Indication: INFLUENZA IMMUNISATION
     Dosage: 0.5ML ONCE/SINGLE ADMINISTRATION
     Route: 030
     Dates: start: 20151201, end: 20151201
  87. INFLUENZA VACCINE [Concomitant]
     Active Substance: INFLUENZA VIRUS VACCINE
     Indication: ANTIVIRAL PROPHYLAXIS
     Dosage: 0.5ML ONCE/SINGLE ADMINISTRATION
     Route: 030
     Dates: start: 20191114, end: 20191114
  88. ACETAMINOPHEN. [Concomitant]
     Active Substance: ACETAMINOPHEN
     Indication: ARTHRALGIA
     Route: 048
     Dates: start: 20151203, end: 20151205
  89. ACETAMINOPHEN. [Concomitant]
     Active Substance: ACETAMINOPHEN
     Indication: PAIN IN EXTREMITY
     Route: 048
     Dates: start: 20151203, end: 20151205
  90. ACETAMINOPHEN. [Concomitant]
     Active Substance: ACETAMINOPHEN
     Indication: NASOPHARYNGITIS
     Dosage: AS REQUIRED
     Route: 048
     Dates: start: 20140409, end: 20140715
  91. ACETAMINOPHEN. [Concomitant]
     Active Substance: ACETAMINOPHEN
     Indication: BACK PAIN
     Route: 048
     Dates: start: 20160702, end: 20160703
  92. ACETAMINOPHEN. [Concomitant]
     Active Substance: ACETAMINOPHEN
     Indication: PAIN IN EXTREMITY
     Route: 048
     Dates: start: 20160702, end: 20160703
  93. ALBUTEROL?VENTOLOIN [Concomitant]
     Indication: NASOPHARYNGITIS
     Dosage: 1 PUFF PRN
     Route: 055
     Dates: start: 20150310, end: 20150316
  94. MYCOSTATIN [Concomitant]
     Active Substance: NYSTATIN
     Indication: ACUTE ABDOMEN
     Dosage: 2 APPLICATIONS BID
     Route: 003
     Dates: start: 20160920, end: 20160923
  95. FLUVACCINE [Concomitant]
     Active Substance: INFLUENZA VIRUS VACCINE
     Indication: ANTIVIRAL PROPHYLAXIS
     Dosage: 0.5ML ONCE/SINGLE ADMINISTRATION
     Route: 030
     Dates: start: 20181115, end: 20181115
  96. TYLENOL [Concomitant]
     Active Substance: ACETAMINOPHEN
     Indication: RHINORRHOEA
     Dosage: 500.0MG ONCE/SINGLE ADMINISTRATION
     Route: 048
     Dates: start: 20161123, end: 20161123
  97. RESTORE?A?LAX [Concomitant]
     Indication: CONSTIPATION
     Route: 048
     Dates: start: 20180906, end: 20190501

REACTIONS (1)
  - Drug-induced liver injury [Recovering/Resolving]

NARRATIVE: CASE EVENT DATE: 20210903
